FAERS Safety Report 18964569 (Version 2)
Quarter: 2021Q2

REPORT INFORMATION
  Report Type: Spontaneous
  Country: US (occurrence: US)
  Receive Date: 20210303
  Receipt Date: 20210629
  Transmission Date: 20210717
  Serious: Yes (Hospitalization)
  Sender: FDA-Public Use
  Company Number: US-PFIZER INC-2019137476

PATIENT
  Age: 67 Year
  Sex: Female
  Weight: 101.2 kg

DRUGS (1)
  1. DETROL LA [Suspect]
     Active Substance: TOLTERODINE TARTRATE
     Dosage: 4 MG, 2X/DAY(1 CAPULSE BID FOR 90 DAYS)
     Route: 048

REACTIONS (3)
  - Pyrexia [Unknown]
  - COVID-19 [Recovering/Resolving]
  - Off label use [Unknown]
